FAERS Safety Report 24388347 (Version 1)
Quarter: 2024Q4

REPORT INFORMATION
  Report Type: Spontaneous
  Country: US (occurrence: US)
  Receive Date: 20241002
  Receipt Date: 20241002
  Transmission Date: 20250114
  Serious: Yes (Death, Other)
  Sender: BRISTOL MYERS SQUIBB
  Company Number: US-BRISTOL-MYERS SQUIBB COMPANY-2024-154845

PATIENT
  Age: 85 Year
  Sex: Male

DRUGS (4)
  1. IDHIFA [Suspect]
     Active Substance: ENASIDENIB MESYLATE
     Indication: Myelodysplastic syndrome
     Route: 048
     Dates: start: 202403, end: 202409
  2. XARELTO [Concomitant]
     Active Substance: RIVAROXABAN
     Indication: Product used for unknown indication
  3. VITAMINS NOS [Concomitant]
     Active Substance: VITAMINS
     Indication: Product used for unknown indication
     Dosage: MULTIVITAMIN LIQ
  4. TIKOSYN [Concomitant]
     Active Substance: DOFETILIDE
     Indication: Product used for unknown indication

REACTIONS (1)
  - Death [Fatal]

NARRATIVE: CASE EVENT DATE: 20240901
